FAERS Safety Report 4686820-7 (Version None)
Quarter: 2005Q2

REPORT INFORMATION
  Report Type: 
  Country: None (occurrence: None)
  Receive Date: 20050609
  Receipt Date: 20050602
  Transmission Date: 20051028
  Serious: Yes (Hospitalization)
  Sender: FDA-Public Use
  Company Number: AU-ABBOTT-05P-008-0302260-00

PATIENT

DRUGS (2)
  1. EPILIM [Suspect]
     Indication: EPILEPSY
     Route: 065
     Dates: start: 20020718
  2. EPILIM [Suspect]
     Route: 065
     Dates: start: 20020101

REACTIONS (2)
  - DEPRESSION [None]
  - TEARFULNESS [None]
